FAERS Safety Report 9669108 (Version 1)
Quarter: 2013Q4

REPORT INFORMATION
  Report Type: Spontaneous
  Country: GB (occurrence: GB)
  Receive Date: 20131105
  Receipt Date: 20131105
  Transmission Date: 20140711
  Serious: Yes (Other)
  Sender: FDA-Public Use
  Company Number: GB-ASTELLAS-2013EU009476

PATIENT
  Age: 52 Year
  Sex: Female

DRUGS (8)
  1. PROGRAF [Suspect]
     Indication: INTESTINAL TRANSPLANT
     Dosage: UNK
     Route: 065
  2. SIROLIMUS [Suspect]
     Indication: INTESTINAL TRANSPLANT
     Dosage: UNK
     Route: 065
  3. ALEMTUZUMAB [Suspect]
     Dosage: 30 MG, UNKNOWN/D
     Route: 042
  4. MYCOPHENOLATE MOFETIL [Suspect]
     Dosage: UNK
     Route: 065
  5. PREDNISOLONE [Suspect]
     Dosage: UNK
     Route: 065
  6. BASILIXIMAB [Suspect]
     Dosage: 20 MG, UNKNOWN/D
     Route: 065
  7. RITUXIMAB [Concomitant]
     Indication: LYMPHADENOPATHY
     Dosage: 375 MG/M2, UNKNOWN/D
     Route: 065
  8. AZATHIOPRINE [Concomitant]
     Indication: IMMUNOSUPPRESSION
     Dosage: UNK
     Route: 065

REACTIONS (13)
  - Off label use [Unknown]
  - Renal failure acute [Unknown]
  - Toxicity to various agents [Unknown]
  - Post transplant lymphoproliferative disorder [Recovered/Resolved]
  - Blood creatinine increased [Unknown]
  - Mouth ulceration [Unknown]
  - Stoma site ulcer [Recovering/Resolving]
  - Enteritis [Recovering/Resolving]
  - Candida infection [Recovering/Resolving]
  - Norovirus test positive [Recovering/Resolving]
  - Transplant dysfunction [Unknown]
  - Device related infection [Unknown]
  - Venous thrombosis [Unknown]
